FAERS Safety Report 15057142 (Version 1)
Quarter: 2018Q2

REPORT INFORMATION
  Report Type: Spontaneous
  Country: US (occurrence: US)
  Receive Date: 20180604
  Receipt Date: 20180604
  Transmission Date: 20180711
  Serious: No
  Sender: FDA-Public Use
  Company Number: None

PATIENT
  Age: 15 Month
  Sex: Male
  Weight: 11.7 kg

DRUGS (4)
  1. FLUCONAZOLA FOR ORAL SUSPENSION USP [Suspect]
     Active Substance: FLUCONAZOLE
     Indication: FUNGAL INFECTION
     Dosage: ?          QUANTITY:1 TEASPOON(S);?
     Route: 048
     Dates: start: 20180604
  2. HYDROCORTISONE. [Concomitant]
     Active Substance: HYDROCORTISONE
  3. MUPIROCIN OINTMENT USP [Suspect]
     Active Substance: MUPIROCIN
     Indication: FUNGAL INFECTION
     Dosage: ?          QUANTITY:22 APPLY;?
     Route: 061
     Dates: start: 20180604, end: 20180604
  4. MUPIROCIN OINTMENT USP [Suspect]
     Active Substance: MUPIROCIN
     Indication: DERMATITIS DIAPER
     Dosage: ?          QUANTITY:22 APPLY;?
     Route: 061
     Dates: start: 20180604, end: 20180604

REACTIONS (3)
  - Tremor [None]
  - Screaming [None]
  - Pain [None]

NARRATIVE: CASE EVENT DATE: 20180604
